FAERS Safety Report 8790881 (Version 1)
Quarter: 2012Q4

REPORT INFORMATION
  Report Type: 
  Country: US (occurrence: None)
  Receive Date: 20120913
  Receipt Date: 20120913
  Transmission Date: 20130627
  Serious: Yes (Hospitalization)
  Sender: FDA-Public Use
  Company Number: None

PATIENT
  Sex: Female
  Weight: 62.4 kg

DRUGS (3)
  1. 5-FLUOROURACIL [Suspect]
     Dates: end: 20120820
  2. BEVACIZUMAB [Suspect]
     Dates: end: 20120820
  3. LEUCOVORIN CALCIUM [Suspect]
     Dates: end: 20120820

REACTIONS (5)
  - Fall [None]
  - Laceration [None]
  - Neck pain [None]
  - Loss of consciousness [None]
  - Cervical vertebral fracture [None]
